FAERS Safety Report 16873276 (Version 2)
Quarter: 2019Q4

REPORT INFORMATION
  Report Type: Spontaneous
  Country: JP (occurrence: JP)
  Receive Date: 20191001
  Receipt Date: 20191112
  Transmission Date: 20200122
  Serious: No
  Sender: FDA-Public Use
  Company Number: JP-ROCHE-2422373

PATIENT
  Age: 60 Year
  Sex: Male

DRUGS (6)
  1. WARFARIN [Concomitant]
     Active Substance: WARFARIN
     Dosage: DOSAGE IS UNCERTAIN.
     Route: 048
  2. OXALIPLATIN. [Concomitant]
     Active Substance: OXALIPLATIN
     Indication: COLORECTAL CANCER
     Dosage: DOSAGE IS UNCERTAIN.
     Route: 041
  3. FLUOROURACIL. [Concomitant]
     Active Substance: FLUOROURACIL
     Dosage: DOSAGE IS UNCERTAIN.
     Route: 041
  4. AVASTIN [Suspect]
     Active Substance: BEVACIZUMAB
     Indication: COLORECTAL CANCER
     Dosage: DOSAGE IS UNCERTAIN.
     Route: 041
  5. LEVOFOLINATE [LEVOFOLINIC ACID] [Concomitant]
     Active Substance: LEVOLEUCOVORIN
     Indication: COLORECTAL CANCER
     Dosage: DOSAGE IS UNCERTAIN.
     Route: 041
  6. FLUOROURACIL. [Concomitant]
     Active Substance: FLUOROURACIL
     Indication: COLORECTAL CANCER
     Dosage: DOSAGE IS UNCERTAIN.
     Route: 040

REACTIONS (3)
  - Haematuria [Unknown]
  - Blood creatine phosphokinase increased [Unknown]
  - Myoglobinuria [Unknown]
